FAERS Safety Report 6233851-1 (Version None)
Quarter: 2009Q2

REPORT INFORMATION
  Report Type: 
  Country: None (occurrence: None)
  Receive Date: 20090618
  Receipt Date: 20090612
  Transmission Date: 20091009
  Serious: Yes (Other)
  Sender: FDA-Public Use
  Company Number: US-TEVA-196539USA

PATIENT
  Sex: Female

DRUGS (2)
  1. CLARAVIS [Suspect]
     Route: 048
     Dates: start: 20090313, end: 20090527
  2. CLARAVIS [Suspect]
     Route: 048
     Dates: start: 20081206, end: 20090105

REACTIONS (1)
  - UNINTENDED PREGNANCY [None]
